FAERS Safety Report 24420716 (Version 1)
Quarter: 2024Q4

REPORT INFORMATION
  Report Type: Spontaneous
  Country: US (occurrence: US)
  Receive Date: 20241010
  Receipt Date: 20241010
  Transmission Date: 20250115
  Serious: Yes (Death, Hospitalization, Other)
  Sender: ALEMBIC
  Company Number: US-ALEMBIC PHARMACUETICALS LIMITED-2024SCAL001446

PATIENT

DRUGS (2)
  1. METHOTREXATE [Suspect]
     Active Substance: METHOTREXATE
     Indication: Psoriatic arthropathy
     Dosage: 2.5 MILLIGRAM, QD SIX DAYS PER WEEK
     Route: 065
  2. LEVETIRACETAM [Concomitant]
     Active Substance: LEVETIRACETAM
     Indication: Seizure
     Dosage: UNK
     Route: 065

REACTIONS (11)
  - Toxicity to various agents [Fatal]
  - Pancytopenia [Fatal]
  - Acute kidney injury [Fatal]
  - Hepatic function abnormal [Fatal]
  - Hypertransaminasaemia [Fatal]
  - Toxic epidermal necrolysis [Fatal]
  - Skin atrophy [Fatal]
  - Pyrexia [Fatal]
  - Lethargy [Fatal]
  - Stomatitis [Fatal]
  - Rash erythematous [Fatal]
